FAERS Safety Report 4488237-7 (Version None)
Quarter: 2004Q4

REPORT INFORMATION
  Report Type: 
  Country: None (occurrence: None)
  Receive Date: 20041026
  Receipt Date: 20041013
  Transmission Date: 20050328
  Serious: Yes (Other)
  Sender: FDA-Public Use
  Company Number: USA041081027

PATIENT
  Age: 34 Year
  Sex: Male

DRUGS (4)
  1. CYMBALTA [Suspect]
     Dosage: 60 MG
     Dates: start: 20041004
  2. KLONOPIN [Concomitant]
  3. NEURONTIN (GABAPENTIN PFIZER) [Concomitant]
  4. EFFEXOR [Concomitant]

REACTIONS (1)
  - THROMBOSIS [None]
